FAERS Safety Report 18503192 (Version 5)
Quarter: 2021Q1

REPORT INFORMATION
  Report Type: Spontaneous
  Country: US (occurrence: US)
  Receive Date: 20201113
  Receipt Date: 20210112
  Transmission Date: 20210419
  Serious: Yes (Hospitalization, Other)
  Sender: FDA-Public Use
  Company Number: US-JNJFOC-20201101694

PATIENT
  Age: 61 Year
  Sex: Male
  Weight: 84.81 kg

DRUGS (26)
  1. DIGOXIN. [Concomitant]
     Active Substance: DIGOXIN
  2. REMODULIN [Suspect]
     Active Substance: TREPROSTINIL
     Route: 065
     Dates: start: 202011
  3. MULTIVITAMIN                       /07504101/ [Concomitant]
     Active Substance: VITAMINS
  4. BUMETANIDE. [Concomitant]
     Active Substance: BUMETANIDE
  5. UPTRAVI [Suspect]
     Active Substance: SELEXIPAG
     Indication: PRODUCT USED FOR UNKNOWN INDICATION
     Route: 065
     Dates: start: 202010, end: 20201025
  6. XARELTO [Concomitant]
     Active Substance: RIVAROXABAN
  7. BUMEX [Concomitant]
     Active Substance: BUMETANIDE
  8. ACETYLDIGOXIN [Concomitant]
     Active Substance: .ALPHA.-ACETYLDIGOXIN
  9. LEVOTHYROXINE. [Concomitant]
     Active Substance: LEVOTHYROXINE
  10. VENTOLIN HFA [Concomitant]
     Active Substance: ALBUTEROL SULFATE
  11. TAMSULOSIN [Concomitant]
     Active Substance: TAMSULOSIN
  12. OXYCODONE [Concomitant]
     Active Substance: OXYCODONE
  13. UPTRAVI [Suspect]
     Active Substance: SELEXIPAG
     Route: 065
     Dates: start: 20201025
  14. AMBRISENTAN [Suspect]
     Active Substance: AMBRISENTAN
     Indication: PULMONARY ARTERIAL HYPERTENSION
     Route: 048
     Dates: start: 20190719
  15. AMBRISENTAN [Suspect]
     Active Substance: AMBRISENTAN
     Indication: PULMONARY HYPERTENSION
  16. ORENITRAM [Suspect]
     Active Substance: TREPROSTINIL
     Indication: PRODUCT USED FOR UNKNOWN INDICATION
     Route: 065
     Dates: end: 202010
  17. ORENITRAM [Suspect]
     Active Substance: TREPROSTINIL
     Dates: end: 202010
  18. IRON [Concomitant]
     Active Substance: IRON
  19. ACETAMINOPHEN. [Concomitant]
     Active Substance: ACETAMINOPHEN
  20. SILDENAFIL. [Concomitant]
     Active Substance: SILDENAFIL
  21. MUCINEX [Concomitant]
     Active Substance: GUAIFENESIN
  22. OXYGEN. [Concomitant]
     Active Substance: OXYGEN
  23. REMODULIN [Suspect]
     Active Substance: TREPROSTINIL
     Indication: PRODUCT USED FOR UNKNOWN INDICATION
     Route: 065
  24. SPIRONOLACTONE. [Concomitant]
     Active Substance: SPIRONOLACTONE
  25. ADVAIR HFA [Concomitant]
     Active Substance: FLUTICASONE PROPIONATE\SALMETEROL XINAFOATE
  26. TADALAFIL. [Concomitant]
     Active Substance: TADALAFIL

REACTIONS (21)
  - Oxygen saturation decreased [Not Recovered/Not Resolved]
  - Cough [Not Recovered/Not Resolved]
  - Diarrhoea [Not Recovered/Not Resolved]
  - Ear discomfort [Not Recovered/Not Resolved]
  - Peripheral swelling [Not Recovered/Not Resolved]
  - Haemoglobin decreased [Unknown]
  - Hot flush [Not Recovered/Not Resolved]
  - Dysphonia [Not Recovered/Not Resolved]
  - Headache [Not Recovered/Not Resolved]
  - Therapy change [Unknown]
  - Haemorrhage [Unknown]
  - Diabetes mellitus [Not Recovered/Not Resolved]
  - Oropharyngeal pain [Not Recovered/Not Resolved]
  - Inappropriate schedule of product administration [Unknown]
  - Malaise [Not Recovered/Not Resolved]
  - Hospitalisation [Unknown]
  - Dizziness [Recovering/Resolving]
  - Dyspnoea [Unknown]
  - Pericardial effusion [Not Recovered/Not Resolved]
  - Pulmonary hypertension [Not Recovered/Not Resolved]
  - Nausea [Not Recovered/Not Resolved]

NARRATIVE: CASE EVENT DATE: 202010
